FAERS Safety Report 8910009 (Version 1)
Quarter: 2012Q4

REPORT INFORMATION
  Report Type: 
  Country: US (occurrence: US)
  Receive Date: 20121115
  Receipt Date: 20121115
  Transmission Date: 20130627
  Serious: Yes (Hospitalization)
  Sender: FDA-Public Use
  Company Number: US-AMGEN-USASP2012071521

PATIENT
  Sex: Female

DRUGS (1)
  1. ENBREL [Suspect]
     Indication: RHEUMATOID ARTHRITIS
     Dosage: 50 mg, qwk
     Dates: start: 20010912

REACTIONS (15)
  - Pulmonary thrombosis [Recovered/Resolved]
  - Unresponsive to stimuli [Recovered/Resolved]
  - Pneumonia [Recovered/Resolved]
  - Foot deformity [Recovered/Resolved]
  - Animal scratch [Recovered/Resolved]
  - Haemorrhage [Recovered/Resolved]
  - Carpal tunnel syndrome [Not Recovered/Not Resolved]
  - Neuropathy peripheral [Not Recovered/Not Resolved]
  - Pain [Not Recovered/Not Resolved]
  - Hypoaesthesia [Not Recovered/Not Resolved]
  - Oedema peripheral [Not Recovered/Not Resolved]
  - Joint swelling [Not Recovered/Not Resolved]
  - Arthropod bite [Recovered/Resolved]
  - Infected bites [Recovered/Resolved]
  - Finger deformity [Not Recovered/Not Resolved]
